FAERS Safety Report 9665994 (Version 1)
Quarter: 2013Q4

REPORT INFORMATION
  Report Type: Spontaneous
  Country: US (occurrence: None)
  Receive Date: 20131031
  Receipt Date: 20131031
  Transmission Date: 20140711
  Serious: Yes (Other)
  Sender: FDA-Public Use
  Company Number: ADE13-027

PATIENT
  Age: 57 Year
  Sex: Male
  Weight: 155.13 kg

DRUGS (2)
  1. HEPARIN SODIUM [Suspect]
     Indication: ATRIAL FIBRILLATION
     Dosage: 23,000 U TOTAL DOSE, IV
     Route: 042
     Dates: start: 20131024, end: 20131024
  2. HEPARIN SODIUM [Suspect]
     Indication: CARDIAC ABLATION
     Dosage: 23,000 U TOTAL DOSE, IV
     Route: 042
     Dates: start: 20131024, end: 20131024

REACTIONS (1)
  - Drug ineffective [None]
